FAERS Safety Report 17902646 (Version 4)
Quarter: 2024Q1

REPORT INFORMATION
  Report Type: Spontaneous
  Country: FR (occurrence: FR)
  Receive Date: 20200617
  Receipt Date: 20240215
  Transmission Date: 20240410
  Serious: Yes (Other)
  Sender: FDA-Public Use
  Company Number: FR-AUROBINDO-AUR-APL-2020-029119

PATIENT
  Age: 56 Year
  Sex: Male

DRUGS (10)
  1. ASPIRIN [Suspect]
     Active Substance: ASPIRIN
     Indication: Product used for unknown indication
     Dosage: 100 MILLIGRAM, ONCE A DAY
     Route: 065
  2. ATORVASTATIN [Suspect]
     Active Substance: ATORVASTATIN
     Indication: Hypercholesterolaemia
     Dosage: 40 MILLIGRAM, ONCE A DAY
     Route: 065
  3. BISOPROLOL [Suspect]
     Active Substance: BISOPROLOL\BISOPROLOL FUMARATE
     Indication: Coronary artery disease
     Dosage: 3.75 MILLIGRAM, TWO TIMES A DAY
     Route: 065
  4. ESOMEPRAZOLE [Suspect]
     Active Substance: ESOMEPRAZOLE
     Indication: Product used for unknown indication
     Dosage: 20 MILLIGRAM, ONCE A DAY
     Route: 065
  5. AMBENONIUM CHLORIDE [Suspect]
     Active Substance: AMBENONIUM CHLORIDE
     Indication: Ocular myasthenia
     Dosage: UP TO 30 MG PER DAY FOR 6 WEEKS
     Route: 065
  6. BISOPROLOL [Concomitant]
     Active Substance: BISOPROLOL\BISOPROLOL FUMARATE
     Indication: Coronary artery disease
     Dosage: 3.75 MILLIGRAM, TWO TIMES A DAY
     Route: 065
  7. BISOPROLOL [Concomitant]
     Active Substance: BISOPROLOL\BISOPROLOL FUMARATE
     Indication: Hypercholesterolaemia
  8. BISOPROLOL [Concomitant]
     Active Substance: BISOPROLOL\BISOPROLOL FUMARATE
     Indication: Myocardial infarction
  9. ESOMEPRAZOLE [Concomitant]
     Active Substance: ESOMEPRAZOLE
     Indication: Product used for unknown indication
     Dosage: 20 MILLIGRAM, ONCE A DAY
     Route: 065
  10. ASPIRIN [Concomitant]
     Active Substance: ASPIRIN
     Indication: Product used for unknown indication
     Dosage: 100 MILLIGRAM, ONCE A DAY
     Route: 065

REACTIONS (5)
  - Ocular myasthenia [Recovered/Resolved]
  - Drug ineffective [Unknown]
  - Diplopia [Recovering/Resolving]
  - Visual impairment [Recovering/Resolving]
  - Eyelid ptosis [Recovering/Resolving]
